FAERS Safety Report 24269746 (Version 1)
Quarter: 2024Q3

REPORT INFORMATION
  Report Type: Spontaneous
  Country: US (occurrence: US)
  Receive Date: 20240830
  Receipt Date: 20240830
  Transmission Date: 20241016
  Serious: No
  Sender: ENDO
  Company Number: US-ENDO USA, INC.-2024-002700

PATIENT
  Sex: Female

DRUGS (5)
  1. PREDNISONE [Suspect]
     Active Substance: PREDNISONE
     Indication: Rash
     Dosage: 5 MILLIGRAM, UNKNOWN (IN THE MORNING)
     Route: 065
  2. IBRANCE [Concomitant]
     Active Substance: PALBOCICLIB
     Indication: Breast cancer stage IV
     Dosage: 75 MILLIGRAM FOR 21 DAYS AND THEN 7 DAYS OFF AND THEN STARTS AGAIN
     Route: 065
     Dates: start: 202211
  3. IBRANCE [Concomitant]
     Active Substance: PALBOCICLIB
     Dosage: 75 MILLIGRAM FOR 21 DAYS AND THEN 7 DAYS OFF AND THEN STARTS AGAIN
     Route: 065
  4. IBRANCE [Concomitant]
     Active Substance: PALBOCICLIB
     Dosage: 75 MILLIGRAM FOR 21 DAYS AND THEN 7 DAYS OFF AND THEN STARTS AGAIN
     Route: 065
  5. IBRANCE [Concomitant]
     Active Substance: PALBOCICLIB
     Dosage: 75 MILLIGRAM FOR 21 DAYS AND THEN 7 DAYS OFF AND THEN STARTS AGAIN
     Route: 065

REACTIONS (1)
  - Drug ineffective [Not Recovered/Not Resolved]
